FAERS Safety Report 7018955-8 (Version None)
Quarter: 2010Q3

REPORT INFORMATION
  Report Type: 
  Country: None (occurrence: None)
  Receive Date: 20100928
  Receipt Date: 20100914
  Transmission Date: 20110219
  Serious: Yes (Other)
  Sender: FDA-Public Use
  Company Number: SE-MYLANLABS-2010S1015001

PATIENT
  Age: 58 Year
  Sex: Female

DRUGS (7)
  1. SOTALOL [Suspect]
     Indication: ARRHYTHMIA
     Dates: end: 20100701
  2. SOTALOL [Suspect]
     Dates: start: 19950101
  3. POTASSIUM [Concomitant]
     Indication: HYPOKALAEMIA
  4. IMDUR [Concomitant]
     Indication: ANGINA PECTORIS
  5. LEVOTHYROXINE SODIUM [Concomitant]
     Indication: HYPOTHYROIDISM
  6. PROPRANOLOL [Concomitant]
     Indication: ARRHYTHMIA
  7. NEXIUM [Concomitant]
     Indication: HERNIA

REACTIONS (11)
  - ARRHYTHMIA [None]
  - CONSTIPATION [None]
  - DECREASED APPETITE [None]
  - DEPRESSED LEVEL OF CONSCIOUSNESS [None]
  - DEPRESSED MOOD [None]
  - HYPOKALAEMIA [None]
  - HYPOTHYROIDISM [None]
  - MUSCLE SPASMS [None]
  - RESTLESSNESS [None]
  - VISION BLURRED [None]
  - WEIGHT DECREASED [None]
